FAERS Safety Report 7145479-X (Version None)
Quarter: 2010Q4

REPORT INFORMATION
  Report Type: 
  Country: None (occurrence: None)
  Receive Date: 20101122
  Receipt Date: 20101116
  Transmission Date: 20110411
  Serious: Yes (Hospitalization)
  Sender: FDA-Public Use
  Company Number: A0892822A

PATIENT
  Age: 66 Year
  Sex: Female

DRUGS (1)
  1. ALUMINUM HYDROXIDE + MAGNESIUM CARBONATE + SODIUM ALGINATE L (ALHYD  + [Suspect]
     Indication: GASTROOESOPHAGEAL REFLUX DISEASE
     Dosage: ORAL
     Route: 048

REACTIONS (10)
  - BURN OESOPHAGEAL [None]
  - DIARRHOEA [None]
  - DRUG ADMINISTRATION ERROR [None]
  - DRUG INEFFECTIVE [None]
  - IMPAIRED WORK ABILITY [None]
  - MALAISE [None]
  - OESOPHAGEAL OEDEMA [None]
  - PAIN [None]
  - THROAT IRRITATION [None]
  - WEIGHT DECREASED [None]
